FAERS Safety Report 6674684-1 (Version None)
Quarter: 2010Q2

REPORT INFORMATION
  Report Type: 
  Country: None (occurrence: None)
  Receive Date: 20100409
  Receipt Date: 20100325
  Transmission Date: 20101027
  Serious: Yes (Death, Hospitalization, Other)
  Sender: FDA-Public Use
  Company Number: US-ELI_LILLY_AND_COMPANY-US201003007092

PATIENT
  Age: 54 Year
  Sex: Female

DRUGS (13)
  1. EFFIENT [Suspect]
     Indication: STENT PLACEMENT
     Dosage: 60 MG, UNK
     Dates: start: 20100301
  2. EFFIENT [Suspect]
     Dosage: 10 MG, DAILY (1/D)
     Dates: start: 20100301
  3. NEXIUM [Concomitant]
  4. GLIPIZIDE [Concomitant]
     Dosage: 10 MG, 2/D
  5. NORVASC [Concomitant]
     Dosage: 10 MG, UNK
  6. LIPITOR [Concomitant]
  7. ASPIRIN [Concomitant]
  8. MORPHINE [Concomitant]
  9. INTEGRILIN [Concomitant]
  10. ZESTRIL [Concomitant]
  11. HEPARIN [Concomitant]
  12. ACTOS [Concomitant]
  13. CYMBALTA [Concomitant]

REACTIONS (3)
  - CHEST PAIN [None]
  - GASTROINTESTINAL NECROSIS [None]
  - OFF LABEL USE [None]
